FAERS Safety Report 4954888-6 (Version None)
Quarter: 2006Q1

REPORT INFORMATION
  Report Type: 
  Country: None (occurrence: None)
  Receive Date: 20060327
  Receipt Date: 20051102
  Transmission Date: 20060701
  Serious: Yes (Hospitalization)
  Sender: FDA-Public Use
  Company Number: US-MERCK-0511USA00641

PATIENT
  Age: 64 Year
  Sex: Male

DRUGS (4)
  1. VIOXX [Suspect]
     Route: 048
     Dates: start: 19990101, end: 20040101
  2. ASPIRIN [Concomitant]
     Route: 048
  3. ALBUTEROL [Concomitant]
     Route: 055
  4. AZMACORT [Concomitant]
     Route: 055

REACTIONS (5)
  - ACUTE MYOCARDIAL INFARCTION [None]
  - BLOOD PRESSURE DIASTOLIC DECREASED [None]
  - CORONARY ARTERY STENOSIS [None]
  - INJURY [None]
  - OEDEMA PERIPHERAL [None]
